FAERS Safety Report 25953654 (Version 1)
Quarter: 2025Q4

REPORT INFORMATION
  Report Type: Spontaneous
  Country: US (occurrence: US)
  Receive Date: 20251023
  Receipt Date: 20251023
  Transmission Date: 20260118
  Serious: No
  Sender: ANI
  Company Number: US-ANIPHARMA-2025-US-032303

PATIENT
  Sex: Female
  Weight: 68.04 kg

DRUGS (3)
  1. IBUPROFEN [Concomitant]
     Active Substance: IBUPROFEN
     Dosage: 800 MG
  2. ATORVASTATIN CALCIUM [Concomitant]
     Active Substance: ATORVASTATIN CALCIUM
     Dosage: 40 MG
  3. CORTICOTROPIN [Suspect]
     Active Substance: CORTICOTROPIN
     Indication: Psoriatic arthropathy
     Dosage: 40 UNITS TWICE A WEEK
     Route: 058

REACTIONS (2)
  - Product dose omission issue [Unknown]
  - Pain [Unknown]
